FAERS Safety Report 7497487-7 (Version None)
Quarter: 2011Q2

REPORT INFORMATION
  Report Type: 
  Country: None (occurrence: None)
  Receive Date: 20110523
  Receipt Date: 20110425
  Transmission Date: 20111010
  Serious: Yes (Death, Life-Threatening)
  Sender: FDA-Public Use
  Company Number: US-BAXTER-2011BH011553

PATIENT
  Age: 20 Month
  Sex: Male
  Weight: 5 kg

DRUGS (3)
  1. METRONIDAZOLE IN PLASTIC CONTAINER [Suspect]
     Indication: OFF LABEL USE
     Route: 042
     Dates: start: 20110414, end: 20110414
  2. PEPCID [Concomitant]
     Indication: VOMITING
     Route: 042
     Dates: start: 20110414
  3. METRONIDAZOLE IN PLASTIC CONTAINER [Suspect]
     Indication: PRODUCT USED FOR UNKNOWN INDICATION
     Route: 042
     Dates: start: 20110414, end: 20110414

REACTIONS (5)
  - CRYING [None]
  - ANAPHYLACTIC SHOCK [None]
  - ANAPHYLACTIC REACTION [None]
  - OPISTHOTONUS [None]
  - VOMITING [None]
